FAERS Safety Report 12110829 (Version 1)
Quarter: 2016Q1

REPORT INFORMATION
  Report Type: Spontaneous
  Country: US (occurrence: US)
  Receive Date: 20160224
  Receipt Date: 20160224
  Transmission Date: 20160526
  Serious: No
  Sender: FDA-Public Use
  Company Number: US-JAZZ-2015-US-004115

PATIENT
  Sex: Male

DRUGS (19)
  1. VENTOLIN HFA [Concomitant]
     Active Substance: ALBUTEROL SULFATE
     Dosage: 90 ?G, 2 PUFFS PRN
     Route: 055
  2. TRAZODONE HYDROCHLORIDE. [Concomitant]
     Active Substance: TRAZODONE HYDROCHLORIDE
     Dosage: 100 MG, QD
     Route: 048
  3. SOMA [Concomitant]
     Active Substance: CARISOPRODOL
     Dosage: 350 MG, QD
     Route: 048
     Dates: end: 20141212
  4. MELOXICAM. [Concomitant]
     Active Substance: MELOXICAM
     Dosage: 15 MG, QD
     Route: 048
  5. STOOL SOFTENER [Concomitant]
     Active Substance: DOCUSATE CALCIUM
     Dosage: 250 MG, QD
     Route: 048
  6. MELATONIN [Concomitant]
     Active Substance: MELATONIN
     Dosage: 3 MG, QD
     Route: 048
  7. NABUMETONE. [Concomitant]
     Active Substance: NABUMETONE
     Dosage: 750 MG, QD
     Route: 048
     Dates: start: 20141204
  8. CYANOCOBALAMIN. [Concomitant]
     Active Substance: CYANOCOBALAMIN
     Dosage: 1000 ?G, QW
     Route: 030
  9. TERAZOSIN [Concomitant]
     Active Substance: TERAZOSIN\TERAZOSIN HYDROCHLORIDE
     Dosage: 5 MG, QD
     Route: 048
  10. VITAMIN C [Concomitant]
     Active Substance: ASCORBIC ACID
     Dosage: 2000 MG, QD
     Route: 048
  11. TESTOSTERONE CYPIONATE. [Concomitant]
     Active Substance: TESTOSTERONE CYPIONATE
     Dosage: 200 MG, EVERY2 WEEKS
     Route: 030
     Dates: start: 20141202
  12. VITAMIN D3 [Concomitant]
     Active Substance: CHOLECALCIFEROL
     Dosage: 5000 U, QD
     Route: 048
  13. ALENDRONATE SODIUM. [Concomitant]
     Active Substance: ALENDRONATE SODIUM
     Dosage: 70 MG, QW
     Route: 048
     Dates: start: 20141204
  14. PRIALT [Suspect]
     Active Substance: ZICONOTIDE ACETATE
     Dosage: 0.133 ?G, QH
     Route: 037
     Dates: end: 201411
  15. OXYCODONE HYDROCHLORIDE. [Concomitant]
     Active Substance: OXYCODONE HYDROCHLORIDE
     Dosage: 15 MG, Q 12-24 H
     Route: 048
  16. PRIALT [Suspect]
     Active Substance: ZICONOTIDE ACETATE
     Indication: PAIN
     Dosage: UNK ?G, QH
     Route: 037
  17. SYMBICORT [Concomitant]
     Active Substance: BUDESONIDE\FORMOTEROL FUMARATE DIHYDRATE
     Dosage: 160 ?G, 2 PUFFS BID
     Route: 055
  18. METFORMIN HCL [Concomitant]
     Active Substance: METFORMIN HYDROCHLORIDE
     Dosage: 500 MG, BID
     Route: 048
  19. ZYRTEC [Concomitant]
     Active Substance: CETIRIZINE HYDROCHLORIDE
     Dosage: 10 MG, QD
     Route: 048

REACTIONS (9)
  - Hallucination, auditory [Unknown]
  - Anxiety [Unknown]
  - Drug ineffective [Unknown]
  - Aphasia [Unknown]
  - Amnesia [Unknown]
  - Stress [Unknown]
  - Confusional state [Unknown]
  - Gait disturbance [Unknown]
  - Insomnia [Unknown]
